FAERS Safety Report 9351104 (Version 5)
Quarter: 2015Q3

REPORT INFORMATION
  Report Type: Spontaneous
  Country: US (occurrence: US)
  Receive Date: 20130617
  Receipt Date: 20150715
  Transmission Date: 20151125
  Serious: Yes (Other)
  Sender: FDA-Public Use
  Company Number: US-BAYER-2013-072613

PATIENT
  Age: 24 Year
  Sex: Female

DRUGS (3)
  1. ALLEGRA [Concomitant]
     Active Substance: FEXOFENADINE HYDROCHLORIDE
     Indication: MULTIPLE ALLERGIES
     Dosage: UNK
     Dates: start: 2006
  2. MIRENA [Suspect]
     Active Substance: LEVONORGESTREL
     Indication: CONTRACEPTION
     Dosage: 20 MCG/24HR, CONT
     Route: 015
     Dates: start: 20070508, end: 20090319
  3. ALBUTEROL. [Concomitant]
     Active Substance: ALBUTEROL
     Indication: MULTIPLE ALLERGIES
     Dosage: UNK
     Dates: start: 2006

REACTIONS (8)
  - Pregnancy with contraceptive device [Recovered/Resolved]
  - Pain [None]
  - Device issue [None]
  - Device difficult to use [None]
  - Device dislocation [None]
  - Abortion spontaneous [None]
  - Drug ineffective [None]
  - Emotional distress [None]

NARRATIVE: CASE EVENT DATE: 200903
